FAERS Safety Report 4940164-4 (Version None)
Quarter: 2006Q1

REPORT INFORMATION
  Report Type: 
  Country: None (occurrence: None)
  Receive Date: 20060307
  Receipt Date: 20060303
  Transmission Date: 20060701
  Serious: No
  Sender: FDA-Public Use
  Company Number: 006769

PATIENT
  Age: 20 Year
  Sex: Male

DRUGS (1)
  1. CLARAVIS [Suspect]
     Indication: ACNE CYSTIC
     Dosage: 20 MG, QD, ORAL
     Route: 048
     Dates: start: 20060131, end: 20060207

REACTIONS (2)
  - DEPRESSION [None]
  - VISION BLURRED [None]
